FAERS Safety Report 20753930 (Version 1)
Quarter: 2022Q2

REPORT INFORMATION
  Report Type: Other
  Country: US (occurrence: None)
  Receive Date: 20220426
  Receipt Date: 20220426
  Transmission Date: 20220720
  Serious: No
  Sender: FDA-Public Use
  Company Number: US-ROCHE-2862482

PATIENT
  Age: 45 Year
  Sex: Male

DRUGS (3)
  1. PIRFENIDONE [Suspect]
     Active Substance: PIRFENIDONE
     Indication: Pulmonary fibrosis
     Route: 065
  2. REMDESIVIR [Concomitant]
     Active Substance: REMDESIVIR
  3. NITRIC OXIDE [Concomitant]
     Active Substance: NITRIC OXIDE

REACTIONS (2)
  - Off label use [Unknown]
  - No adverse event [Unknown]
